FAERS Safety Report 10024065 (Version 1)
Quarter: 2014Q1

REPORT INFORMATION
  Report Type: Spontaneous
  Country: US (occurrence: US)
  Receive Date: 20140320
  Receipt Date: 20140320
  Transmission Date: 20141002
  Serious: No
  Sender: FDA-Public Use
  Company Number: US-009507513-1403USA000837

PATIENT
  Sex: Female

DRUGS (1)
  1. OXYTROL FOR WOMEN [Suspect]
     Indication: HYPERTONIC BLADDER
     Dosage: UNK, UNKNOWN
     Route: 062

REACTIONS (5)
  - Dry mouth [Unknown]
  - Application site irritation [Unknown]
  - Circumstance or information capable of leading to medication error [Unknown]
  - Drug effect decreased [Unknown]
  - Product quality issue [Unknown]
